FAERS Safety Report 11718740 (Version 1)
Quarter: 2015Q4

REPORT INFORMATION
  Report Type: Spontaneous
  Country: US (occurrence: US)
  Receive Date: 20151110
  Receipt Date: 20151110
  Transmission Date: 20160304
  Serious: No
  Sender: FDA-Public Use
  Company Number: US-MEDA-2014110004

PATIENT
  Sex: Female

DRUGS (1)
  1. ASTEPRO [Suspect]
     Active Substance: AZELASTINE HYDROCHLORIDE
     Indication: SINUS DISORDER
     Dates: start: 20141102

REACTIONS (4)
  - Ocular hyperaemia [Recovering/Resolving]
  - Drug intolerance [Unknown]
  - Accidental exposure to product [Unknown]
  - Dysgeusia [Unknown]

NARRATIVE: CASE EVENT DATE: 20141102
